FAERS Safety Report 15643255 (Version 2)
Quarter: 2019Q2

REPORT INFORMATION
  Report Type: Spontaneous
  Country: US (occurrence: US)
  Receive Date: 20181121
  Receipt Date: 20190424
  Transmission Date: 20190711
  Serious: Yes (Other)
  Sender: FDA-Public Use
  Company Number: US-SA-2018SA317038

PATIENT
  Age: 48 Year
  Sex: Female
  Weight: 53 kg

DRUGS (16)
  1. NORCO [Concomitant]
     Active Substance: ACETAMINOPHEN\HYDROCODONE BITARTRATE
  2. MORPHINE [Concomitant]
     Active Substance: MORPHINE
  3. VICODIN [Concomitant]
     Active Substance: ACETAMINOPHEN\HYDROCODONE BITARTRATE
  4. DARVOCET [Concomitant]
     Active Substance: ACETAMINOPHEN\PROPOXYPHENE HYDROCHLORIDE
  5. CLINDAMYCIN. [Concomitant]
     Active Substance: CLINDAMYCIN
  6. TAXOTERE [Suspect]
     Active Substance: DOCETAXEL
     Indication: BREAST CANCER FEMALE
     Dosage: UNK UNK, UNK
     Route: 042
     Dates: start: 20100203, end: 20100203
  7. HERCEPTIN [Concomitant]
     Active Substance: TRASTUZUMAB
  8. ACETAMINOPHEN;HYDROCODONE [Concomitant]
     Active Substance: ACETAMINOPHEN\HYDROCODONE
  9. IBUPROFEN. [Concomitant]
     Active Substance: IBUPROFEN
  10. VALIUM [Concomitant]
     Active Substance: DIAZEPAM
  11. TAXOTERE [Suspect]
     Active Substance: DOCETAXEL
     Dosage: 120 MG, Q3W
     Route: 042
     Dates: start: 20100706, end: 20100706
  12. PARAPLATIN [Concomitant]
     Active Substance: CARBOPLATIN
  13. DEXTROSE. [Concomitant]
     Active Substance: DEXTROSE
  14. DIAZEPAM. [Concomitant]
     Active Substance: DIAZEPAM
  15. OXYCODONE [Concomitant]
     Active Substance: OXYCODONE
  16. CARBOPLATIN. [Concomitant]
     Active Substance: CARBOPLATIN

REACTIONS (2)
  - Alopecia [Recovering/Resolving]
  - Psychological trauma [Unknown]

NARRATIVE: CASE EVENT DATE: 20101130
